FAERS Safety Report 4572028-2 (Version None)
Quarter: 2005Q1

REPORT INFORMATION
  Report Type: 
  Country: None (occurrence: None)
  Receive Date: 20050202
  Receipt Date: 20050120
  Transmission Date: 20050727
  Serious: Yes (Other)
  Sender: FDA-Public Use
  Company Number: 2005017256

PATIENT
  Sex: Female
  Weight: 58.0604 kg

DRUGS (3)
  1. ZYRTEC-D 12 HOUR [Suspect]
     Indication: INNER EAR DISORDER
     Dates: start: 20030101
  2. DIPHENHYDRAMINE HCL [Concomitant]
  3. PSEUDOEPHEDRINE HCL [Concomitant]

REACTIONS (4)
  - CONVULSION [None]
  - FLUSHING [None]
  - HOT FLUSH [None]
  - LOSS OF CONSCIOUSNESS [None]
